FAERS Safety Report 5794855-6 (Version None)
Quarter: 2008Q2

REPORT INFORMATION
  Report Type: 
  Country: None (occurrence: None)
  Receive Date: 20080630
  Receipt Date: 20080622
  Transmission Date: 20081010
  Serious: Yes (Death)
  Sender: FDA-Public Use
  Company Number: AU-AVENTIS-200812116EU

PATIENT
  Age: 61 Year
  Sex: Female

DRUGS (11)
  1. CLEXANE [Suspect]
     Dates: start: 20080204
  2. CLEXANE [Suspect]
     Dates: start: 20080201
  3. CLEXANE [Suspect]
     Dates: start: 20080204
  4. CLEXANE [Suspect]
     Dates: start: 20080201
  5. CLEXANE [Suspect]
     Dates: start: 20080204
  6. CLEXANE [Suspect]
     Dates: start: 20080201
  7. BACTRIM [Concomitant]
  8. VALTREX [Concomitant]
  9. NEXIUM [Concomitant]
  10. DEXAMETHASONE [Concomitant]
  11. DOXORUBICIN HCL [Concomitant]

REACTIONS (5)
  - CARDIAC FAILURE CONGESTIVE [None]
  - HYPOTENSION [None]
  - OEDEMA PERIPHERAL [None]
  - RASH [None]
  - SWELLING FACE [None]
